FAERS Safety Report 4356447-5 (Version None)
Quarter: 2004Q2

REPORT INFORMATION
  Report Type: 
  Country: None (occurrence: None)
  Receive Date: 20040512
  Receipt Date: 20040413
  Transmission Date: 20050107
  Serious: Yes (Life-Threatening, Hospitalization)
  Sender: FDA-Public Use
  Company Number: PHBS2004AR04970

PATIENT
  Age: 56 Year
  Sex: Female

DRUGS (3)
  1. ERGOTAMINE TARTRATE [Suspect]
     Indication: HEADACHE
     Dosage: 1 MG/D
     Route: 048
  2. DIPYRONE [Suspect]
     Dosage: 500 MG/D
     Route: 048
  3. ASPIRIN [Suspect]
     Dosage: 500 TO 1500 MG/D
     Route: 048

REACTIONS (6)
  - CEREBRAL HAEMORRHAGE [None]
  - COGNITIVE DISORDER [None]
  - COMA [None]
  - CONVULSION [None]
  - DRUG DEPENDENCE [None]
  - HEMIPARESIS [None]
